FAERS Safety Report 9688968 (Version 1)
Quarter: 2013Q4

REPORT INFORMATION
  Report Type: Spontaneous
  Country: US (occurrence: US)
  Receive Date: 20131114
  Receipt Date: 20131114
  Transmission Date: 20140711
  Serious: Yes (Death)
  Sender: FDA-Public Use
  Company Number: US-GLAXOSMITHKLINE-A1049560A

PATIENT
  Age: 88 Year
  Sex: Female

DRUGS (1)
  1. VOTRIENT [Suspect]
     Indication: RENAL CANCER
     Dosage: 400MG PER DAY
     Route: 048
     Dates: start: 201306, end: 201309

REACTIONS (1)
  - Death [Fatal]
